FAERS Safety Report 9071753 (Version 1)
Quarter: 2013Q1

REPORT INFORMATION
  Report Type: Spontaneous
  Country: ES (occurrence: ES)
  Receive Date: 20130129
  Receipt Date: 20130129
  Transmission Date: 20140127
  Serious: Yes (Hospitalization)
  Sender: FDA-Public Use
  Company Number: ES-BRISTOL-MYERS SQUIBB COMPANY-17311648

PATIENT
  Age: 55 Year
  Sex: Female

DRUGS (4)
  1. REYATAZ [Suspect]
     Route: 048
  2. LAMIVUDINE [Concomitant]
  3. NORVIR [Concomitant]
  4. TENOFOVIR [Concomitant]

REACTIONS (1)
  - Surgery [Unknown]
